FAERS Safety Report 7812809-2 (Version None)
Quarter: 2011Q4

REPORT INFORMATION
  Report Type: 
  Country: None (occurrence: None)
  Receive Date: 20111011
  Receipt Date: 20110928
  Transmission Date: 20120403
  Serious: Yes (Hospitalization, Other)
  Sender: FDA-Public Use
  Company Number: 2011SP046152

PATIENT
  Age: 51 Year
  Sex: Female
  Weight: 49.4 kg

DRUGS (18)
  1. MIYA-BM [Concomitant]
  2. RIBAVIRIN [Suspect]
     Dosage: SEE IMAGE:
     Dates: start: 20110915, end: 20110915
  3. RIBAVIRIN [Suspect]
     Dosage: SEE IMAGE:
     Dates: start: 20110918, end: 20110918
  4. RIBAVIRIN [Suspect]
     Dosage: SEE IMAGE:
     Dates: start: 20110919, end: 20110919
  5. RIBAVIRIN [Suspect]
     Dosage: SEE IMAGE:
     Dates: start: 20110917, end: 20110917
  6. RIBAVIRIN [Suspect]
     Dosage: SEE IMAGE:
     Dates: start: 20110921, end: 20110921
  7. RIBAVIRIN [Suspect]
     Dosage: SEE IMAGE:
     Dates: start: 20110920, end: 20110920
  8. PRIMPERAN TAB [Concomitant]
  9. ENSURE [Concomitant]
  10. NEOLAMIN 3B [Concomitant]
  11. PEGINTERFERON ALFA-2B [Suspect]
     Indication: HEPATITIS C
     Dosage: 80 MCG;QW;
     Dates: start: 20110915, end: 20110915
  12. PEGINTERFERON ALFA-2B [Suspect]
     Indication: HEPATITIS C
     Dosage: 80 MCG;QW;
     Dates: start: 20110922, end: 20110922
  13. VEEN D [Concomitant]
  14. SELBEX [Concomitant]
  15. TPN ELECTROLYTES IN PLASTIC CONTAINER [Concomitant]
  16. PEGINTERFERON ALFA-2B [Suspect]
     Indication: HEPATITIS C
     Dosage: 300 MG;BID;
     Dates: start: 20110915
  17. ACETAMINOPHEN [Concomitant]
  18. PRIMPERAN TAB [Concomitant]

REACTIONS (4)
  - NAUSEA [None]
  - VOMITING [None]
  - HYPONATRAEMIA [None]
  - DECREASED APPETITE [None]
